FAERS Safety Report 9297862 (Version 3)
Quarter: 2013Q3

REPORT INFORMATION
  Report Type: Spontaneous
  Country: GB (occurrence: GB)
  Receive Date: 20130520
  Receipt Date: 20130913
  Transmission Date: 20140515
  Serious: Yes (Other)
  Sender: FDA-Public Use
  Company Number: GB-JNJFOC-20130505673

PATIENT
  Age: 28 Year
  Sex: Male

DRUGS (4)
  1. STELARA [Suspect]
     Indication: PSORIASIS
     Route: 058
  2. STELARA [Suspect]
     Indication: PSORIASIS
     Route: 058
     Dates: start: 20130904, end: 20130904
  3. STELARA [Suspect]
     Indication: PSORIASIS
     Route: 058
     Dates: start: 20130517, end: 20130517
  4. NAPROXEN [Concomitant]
     Route: 065

REACTIONS (4)
  - Chest pain [Not Recovered/Not Resolved]
  - Pneumonia [Recovered/Resolved]
  - Renal pain [Not Recovered/Not Resolved]
  - Arthralgia [Recovered/Resolved]
